FAERS Safety Report 16575337 (Version 3)
Quarter: 2019Q4

REPORT INFORMATION
  Report Type: Report from Study
  Country: None (occurrence: HU)
  Receive Date: 20190716
  Receipt Date: 20191204
  Transmission Date: 20200122
  Serious: Yes (Hospitalization, Other)
  Sender: FDA-Public Use
  Company Number: HU-ABBVIE-19K-076-2852970-00

PATIENT
  Age: 68 Year
  Sex: Male

DRUGS (5)
  1. MILGAMMA [Concomitant]
     Indication: NEUROPATHY PERIPHERAL
     Dosage: 50 MG / 250 MCG 1 TABLET AT A TIME
     Route: 048
     Dates: start: 2012
  2. BENFOGAMMA [Concomitant]
     Indication: NEUROPATHY PERIPHERAL
     Route: 048
     Dates: start: 2014
  3. CEFTRIAXONE. [Concomitant]
     Active Substance: CEFTRIAXONE
     Indication: PNEUMONIA
  4. DUODOPA [Suspect]
     Active Substance: CARBIDOPA\LEVODOPA
     Indication: PARKINSON^S DISEASE
     Dosage: MORNING DOSE 1.3 ML; CONTINUOUS DOSE 2.1 ML/H; EXTRA DOSE 0.5 ML
     Route: 050
     Dates: start: 20140624, end: 201907
  5. PANANGIN FORTE [Concomitant]
     Indication: PROPHYLAXIS
     Dosage: 316 MG/280 MG 1 TABLET AT NIGHT
     Route: 048
     Dates: start: 2014

REACTIONS (4)
  - Weight decreased [Not Recovered/Not Resolved]
  - Gastrointestinal stoma complication [Not Recovered/Not Resolved]
  - Pneumonia [Recovering/Resolving]
  - Dysphagia [Not Recovered/Not Resolved]

NARRATIVE: CASE EVENT DATE: 20190701
